FAERS Safety Report 4465064-8 (Version None)
Quarter: 2004Q3

REPORT INFORMATION
  Report Type: 
  Country: None (occurrence: None)
  Receive Date: 20040929
  Receipt Date: 20040915
  Transmission Date: 20050211
  Serious: Yes (Hospitalization, Congenital Anomaly, Other)
  Sender: FDA-Public Use
  Company Number: US_0409105482

PATIENT
  Age: 1 Day
  Sex: Male
  Weight: 5 kg

DRUGS (2)
  1. SEMI-LENTE ILETIN INSULIN [Suspect]
  2. ULTRA-LENTE ILETIN INSULIN [Suspect]

REACTIONS (10)
  - ANEURYSM [None]
  - BLOOD GLUCOSE DECREASED [None]
  - CAESAREAN SECTION [None]
  - CARDIOMEGALY [None]
  - DRUG EXPOSURE DURING PREGNANCY [None]
  - DRUG EXPOSURE VIA BREAST MILK [None]
  - IMMATURE RESPIRATORY SYSTEM [None]
  - LARGE FOR DATES BABY [None]
  - PREMATURE BABY [None]
  - PREMATURE LABOUR [None]
